FAERS Safety Report 25754066 (Version 1)
Quarter: 2025Q3

REPORT INFORMATION
  Report Type: Spontaneous
  Country: US (occurrence: US)
  Receive Date: 20250903
  Receipt Date: 20250903
  Transmission Date: 20251021
  Serious: No
  Sender: ELI LILLY AND COMPANY
  Company Number: US-ELI_LILLY_AND_COMPANY-US202509000426

PATIENT
  Age: 35 Year
  Sex: Male

DRUGS (8)
  1. ZEPBOUND [Suspect]
     Active Substance: TIRZEPATIDE
     Indication: Product used for unknown indication
     Route: 058
  2. ZEPBOUND [Suspect]
     Active Substance: TIRZEPATIDE
     Indication: Product used for unknown indication
     Route: 058
  3. ZEPBOUND [Suspect]
     Active Substance: TIRZEPATIDE
     Indication: Product used for unknown indication
     Route: 058
  4. ZEPBOUND [Suspect]
     Active Substance: TIRZEPATIDE
     Indication: Product used for unknown indication
     Route: 058
  5. ZEPBOUND [Suspect]
     Active Substance: TIRZEPATIDE
     Route: 058
     Dates: start: 202508
  6. ZEPBOUND [Suspect]
     Active Substance: TIRZEPATIDE
     Route: 058
     Dates: start: 202508
  7. ZEPBOUND [Suspect]
     Active Substance: TIRZEPATIDE
     Route: 058
     Dates: start: 202508
  8. ZEPBOUND [Suspect]
     Active Substance: TIRZEPATIDE
     Route: 058
     Dates: start: 202508

REACTIONS (4)
  - Injection site infection [Unknown]
  - Incorrect dose administered [Unknown]
  - Injection site rash [Unknown]
  - Injection site haemorrhage [Unknown]

NARRATIVE: CASE EVENT DATE: 20250801
